FAERS Safety Report 15504369 (Version 1)
Quarter: 2018Q4

REPORT INFORMATION
  Report Type: Spontaneous
  Country: US (occurrence: US)
  Receive Date: 20181016
  Receipt Date: 20181016
  Transmission Date: 20190205
  Serious: Yes (Other)
  Sender: FDA-Public Use
  Company Number: US-ASTELLAS-2018US043954

PATIENT
  Age: 70 Year
  Sex: Female

DRUGS (1)
  1. LEXISCAN [Suspect]
     Active Substance: REGADENOSON
     Indication: PRODUCT USED FOR UNKNOWN INDICATION
     Dosage: 0.4 MG, UNKNOWN FREQ.
     Route: 065
     Dates: start: 20180910, end: 20180910

REACTIONS (13)
  - Impaired driving ability [Unknown]
  - Multiple sclerosis [Unknown]
  - Vomiting [Unknown]
  - Abdominal pain [Unknown]
  - Visual impairment [Unknown]
  - Dyspnoea [Unknown]
  - Loss of consciousness [Unknown]
  - Gait disturbance [Unknown]
  - Hypertrophic cardiomyopathy [Unknown]
  - Dysstasia [Unknown]
  - Chest pain [Unknown]
  - Weight decreased [Unknown]
  - Diarrhoea [Unknown]

NARRATIVE: CASE EVENT DATE: 20180911
